FAERS Safety Report 13029857 (Version 1)
Quarter: 2016Q4

REPORT INFORMATION
  Report Type: Spontaneous
  Country: US (occurrence: US)
  Receive Date: 20161214
  Receipt Date: 20161214
  Transmission Date: 20170207
  Serious: Yes (Disabling)
  Sender: FDA-Public Use
  Company Number: None

PATIENT
  Age: 29 Year
  Sex: Female
  Weight: 50.4 kg

DRUGS (11)
  1. TURMERIC [Concomitant]
     Active Substance: TURMERIC
  2. PROPRANOLOL [Concomitant]
     Active Substance: PROPRANOLOL\PROPRANOLOL HYDROCHLORIDE
  3. PROBIOTICS [Concomitant]
     Active Substance: PROBIOTICS NOS
  4. ZINC CITRATE [Concomitant]
     Active Substance: ZINC CITRATE
  5. MTHF [Concomitant]
  6. JUICING AS A SUPPLEMENT [Concomitant]
  7. SMZ/TMP DS TAB 800-160 [Suspect]
     Active Substance: SULFAMETHOXAZOLE\TRIMETHOPRIM
     Indication: CELLULITIS
     Dosage: ?          QUANTITY:20 CAPSULE(S);?
     Route: 048
     Dates: start: 20160619, end: 20160622
  8. MAGNESIUM [Concomitant]
     Active Substance: MAGNESIUM
  9. ROCEPHIN [Suspect]
     Active Substance: CEFTRIAXONE SODIUM
     Indication: CELLULITIS
     Dosage: ?          OTHER FREQUENCY:ONCE;?
     Route: 030
     Dates: start: 20160618, end: 20160618
  10. OMEGA 3^S (ALGAL OIL) [Concomitant]
  11. VITAMIN D [Concomitant]
     Active Substance: CHOLECALCIFEROL

REACTIONS (16)
  - Nausea [None]
  - Arthralgia [None]
  - Hypophagia [None]
  - Myoclonus [None]
  - Malaise [None]
  - Headache [None]
  - Joint swelling [None]
  - Haematochezia [None]
  - Vitreous floaters [None]
  - Diarrhoea [None]
  - Muscle swelling [None]
  - Abdominal pain [None]
  - Blepharitis [None]
  - Premenstrual syndrome [None]
  - Cellulitis [None]
  - Muscle spasms [None]

NARRATIVE: CASE EVENT DATE: 20160618
